FAERS Safety Report 24889507 (Version 3)
Quarter: 2025Q1

REPORT INFORMATION
  Report Type: Report from Study
  Country: US (occurrence: US)
  Receive Date: 20250127
  Receipt Date: 20250214
  Transmission Date: 20250408
  Serious: Yes (Hospitalization)
  Sender: BAYER HEALTHCARE PHARMACEUTICALS INC.
  Company Number: US-BAYER-2025A011359

PATIENT
  Age: 75 Year
  Sex: Female
  Weight: 126.98 kg

DRUGS (22)
  1. ADEMPAS [Suspect]
     Active Substance: RIOCIGUAT
     Indication: Pulmonary arterial hypertension
     Route: 048
     Dates: start: 20241209
  2. ADEMPAS [Suspect]
     Active Substance: RIOCIGUAT
     Indication: Pulmonary arterial hypertension
     Dosage: 0.5 MG, TID
     Route: 048
  3. ADEMPAS [Suspect]
     Active Substance: RIOCIGUAT
     Indication: Pulmonary arterial hypertension
     Dosage: 0.5 MG, QD
     Route: 048
  4. LIPITOR [Concomitant]
     Active Substance: ATORVASTATIN CALCIUM
  5. METRONIDAZOLE [Concomitant]
     Active Substance: METRONIDAZOLE
  6. NITROFURANTOIN [Concomitant]
     Active Substance: NITROFURANTOIN
  7. TYLENOL [Concomitant]
     Active Substance: ACETAMINOPHEN
  8. PROTONIX [Concomitant]
     Active Substance: PANTOPRAZOLE SODIUM
  9. DOXYCYCLINE HYCLATE [Concomitant]
     Active Substance: DOXYCYCLINE HYCLATE
  10. MESALAMINE [Concomitant]
     Active Substance: MESALAMINE
  11. ELIQUIS [Concomitant]
     Active Substance: APIXABAN
  12. FAMOTIDINE [Concomitant]
     Active Substance: FAMOTIDINE
  13. TRAMADOL HCL [Concomitant]
     Active Substance: TRAMADOL HYDROCHLORIDE
  14. LOMOTIL [Concomitant]
     Active Substance: ATROPINE SULFATE\DIPHENOXYLATE HYDROCHLORIDE
  15. Budesonide extended release [Concomitant]
  16. LISINOPRIL [Concomitant]
     Active Substance: LISINOPRIL
  17. MUPIROCIN [Concomitant]
     Active Substance: MUPIROCIN
  18. OXYGEN [Concomitant]
     Active Substance: OXYGEN
  19. CIPROFLOXACIN HYDROCHLORIDE [Concomitant]
     Active Substance: CIPROFLOXACIN HYDROCHLORIDE
  20. FLUCONAZOLE [Concomitant]
     Active Substance: FLUCONAZOLE
  21. ATROPINE\DIPHENOXYLATE [Concomitant]
     Active Substance: ATROPINE\DIPHENOXYLATE
  22. TRIAMCINOLONE ACETONIDE [Concomitant]
     Active Substance: TRIAMCINOLONE ACETONIDE

REACTIONS (4)
  - Fall [None]
  - Nausea [None]
  - Vomiting [Not Recovered/Not Resolved]
  - Inappropriate schedule of product administration [None]

NARRATIVE: CASE EVENT DATE: 20250114
